FAERS Safety Report 6710101-0 (Version None)
Quarter: 2010Q2

REPORT INFORMATION
  Report Type: 
  Country: None (occurrence: None)
  Receive Date: 20100504
  Receipt Date: 20100422
  Transmission Date: 20101027
  Serious: Yes (Other)
  Sender: FDA-Public Use
  Company Number: US-PFIZER INC-2010014883

PATIENT
  Sex: Male

DRUGS (2)
  1. SUTENT [Suspect]
     Indication: METASTATIC RENAL CELL CARCINOMA
     Dosage: ONE 25 MG CAPSULE AND ONE 12.5 MG CAPSULE, DAILY, 4 WEEKS ON/2WEEKS OFF
     Route: 048
     Dates: start: 20091001
  2. SUTENT [Suspect]
     Dosage: 50 MG, 1X/DAY, 4 WEEKS ON/2WEEKS OFF
     Dates: start: 20091028

REACTIONS (2)
  - BLOOD PRESSURE INCREASED [None]
  - CHEST PAIN [None]
